FAERS Safety Report 17978421 (Version 1)
Quarter: 2020Q3

REPORT INFORMATION
  Report Type: Spontaneous
  Country: US (occurrence: US)
  Receive Date: 20200703
  Receipt Date: 20200703
  Transmission Date: 20201103
  Serious: No
  Sender: FDA-Public Use
  Company Number: US-VERTEX PHARMACEUTICALS-2020-004266

PATIENT
  Age: 25 Year
  Sex: Female
  Weight: 45 kg

DRUGS (12)
  1. VITAMIN A [RETINOL] [Concomitant]
     Active Substance: RETINOL
     Dosage: 10000 UNIT CAPSULE
  2. VITAMIN D3 [Concomitant]
     Active Substance: CHOLECALCIFEROL
  3. PULMOZYME [Concomitant]
     Active Substance: DORNASE ALFA
  4. TRIKAFTA [Suspect]
     Active Substance: ELEXACAFTOR\IVACAFTOR\TEZACAFTOR
     Indication: CYSTIC FIBROSIS
     Dosage: 2 TABS(100 MG ELEXACAFTOR/ 50 MG TEZACAFTOR/ 75 MG IVACAFTOR) IN AM; 1 TAB(150MG IVACAFTOR) IN PM
     Route: 048
     Dates: start: 20191207
  5. HYPERSAL [Concomitant]
     Active Substance: SODIUM CHLORIDE
     Dosage: VIAL?NEB
  6. CALCIUM [Concomitant]
     Active Substance: CALCIUM
  7. XOPENEX [Concomitant]
     Active Substance: LEVALBUTEROL HYDROCHLORIDE
     Dosage: 1.25MG/3ML VIAL?NEB
  8. CREON [Suspect]
     Active Substance: PANCRELIPASE AMYLASE\PANCRELIPASE LIPASE\PANCRELIPASE PROTEASE
     Indication: PRODUCT USED FOR UNKNOWN INDICATION
     Dosage: 24?76?120K CAPSULE DR
     Route: 065
  9. TOBI PODHALER [Concomitant]
     Active Substance: TOBRAMYCIN
     Dosage: 28 MG CAP W/DEV
  10. MINERALS [Concomitant]
     Active Substance: MINERALS
  11. IRON [Concomitant]
     Active Substance: IRON
     Dosage: 159(45)MG TABLET ER
  12. CAYSTON [Concomitant]
     Active Substance: AZTREONAM
     Dosage: 75 MG/ML VIAL?NEB

REACTIONS (12)
  - Viral infection [Unknown]
  - Insurance issue [Recovered/Resolved]
  - Weight increased [Recovered/Resolved]
  - Ocular discomfort [Recovered/Resolved]
  - Hot flush [Unknown]
  - Rash [Recovered/Resolved]
  - Diarrhoea [Not Recovered/Not Resolved]
  - Influenza like illness [Unknown]
  - Productive cough [Recovered/Resolved]
  - Constipation [Recovered/Resolved]
  - Body temperature increased [Unknown]
  - Migraine [Unknown]

NARRATIVE: CASE EVENT DATE: 202001
